FAERS Safety Report 6126498-9 (Version None)
Quarter: 2009Q1

REPORT INFORMATION
  Report Type: 
  Country: None (occurrence: None)
  Receive Date: 20090320
  Receipt Date: 20090311
  Transmission Date: 20090719
  Serious: Yes (Life-Threatening, Hospitalization)
  Sender: FDA-Public Use
  Company Number: JP-PFIZER INC-2009182095

PATIENT

DRUGS (5)
  1. SOMATROPIN [Suspect]
     Indication: PRADER-WILLI SYNDROME
     Dosage: UNK, 7 TIMES/WEEK
     Route: 058
     Dates: start: 20040918, end: 20050826
  2. SOMATROPIN [Suspect]
     Dosage: 3.5 MG/WEEK, 7 TIMES/WEEK
     Route: 058
     Dates: start: 20050827, end: 20051202
  3. SOMATROPIN [Suspect]
     Dosage: 3.9 MG/WEEK, 7 TIMES/WEEK
     Route: 058
     Dates: start: 20051203, end: 20060929
  4. SOMATROPIN [Suspect]
     Dosage: 4.9 MG/WEEK, 7 TIMES/WEEK
     Route: 058
     Dates: start: 20060930, end: 20080312
  5. SOMATROPIN [Suspect]
     Dosage: 6.3 MG/WEEK, 7 TIMES/WEEK
     Route: 058
     Dates: start: 20080313

REACTIONS (4)
  - ABSCESS NECK [None]
  - ADENOIDAL HYPERTROPHY [None]
  - TONSILLAR HYPERTROPHY [None]
  - TONSILLITIS [None]
